FAERS Safety Report 11856930 (Version 1)
Quarter: 2015Q4

REPORT INFORMATION
  Report Type: Spontaneous
  Country: RU (occurrence: RU)
  Receive Date: 20151221
  Receipt Date: 20151221
  Transmission Date: 20160305
  Serious: Yes (Hospitalization)
  Sender: FDA-Public Use
  Company Number: RU-B.I. PHARMACEUTICALS,INC./RIDGEFIELD-2015-BI-70256RZ

PATIENT
  Sex: Male

DRUGS (2)
  1. XARELTO [Concomitant]
     Active Substance: RIVAROXABAN
     Indication: PRODUCT USED FOR UNKNOWN INDICATION
     Route: 065
  2. PRADAXA [Suspect]
     Active Substance: DABIGATRAN ETEXILATE MESYLATE
     Indication: PAROXYSMAL ARRHYTHMIA
     Route: 048
     Dates: start: 20151019

REACTIONS (5)
  - Dizziness [Recovered/Resolved]
  - Tachycardia [Recovered/Resolved]
  - Asthenia [Recovered/Resolved]
  - Faeces discoloured [Recovered/Resolved]
  - Headache [Recovered/Resolved]
